FAERS Safety Report 11720616 (Version 5)
Quarter: 2016Q1

REPORT INFORMATION
  Report Type: Report from Study
  Country: US (occurrence: US)
  Receive Date: 20151110
  Receipt Date: 20160323
  Transmission Date: 20160525
  Serious: Yes (Death, Hospitalization)
  Sender: FDA-Public Use
  Company Number: US-ACTELION-A-NJ2015-124992

PATIENT
  Age: 58 Year
  Sex: Male

DRUGS (12)
  1. RANITIDINE [Concomitant]
     Active Substance: RANITIDINE\RANITIDINE HYDROCHLORIDE
     Indication: DYSPEPSIA
     Dosage: 75 MG, PRN
     Route: 048
     Dates: start: 20150623
  2. SPIRONOLACTONE. [Concomitant]
     Active Substance: SPIRONOLACTONE
     Indication: DIURETIC THERAPY
     Dosage: 100 MG, QD
     Route: 048
     Dates: start: 20150826
  3. LACTULOSE. [Concomitant]
     Active Substance: LACTULOSE
     Indication: HEPATIC ENCEPHALOPATHY
     Dosage: 20 GM/30 ML, TID
     Route: 048
     Dates: start: 20150518
  4. TIOTROPIUM [Concomitant]
     Active Substance: TIOTROPIUM
     Indication: DYSPNOEA
     Dosage: 18 MCG, UNK
     Dates: start: 20150928
  5. OXYCODONE AND ACETAMINOPHEN [Concomitant]
     Active Substance: ACETAMINOPHEN\OXYCODONE HYDROCHLORIDE
     Indication: PAIN
     Dosage: 10-325 MG
     Dates: start: 20150415
  6. CLONAZEPAM. [Concomitant]
     Active Substance: CLONAZEPAM
     Indication: ANXIETY
     Dosage: 1 MG, BID
     Route: 048
     Dates: start: 20150425
  7. LEVOTHYROXINE. [Concomitant]
     Active Substance: LEVOTHYROXINE
     Indication: HYPOTHYROIDISM
     Dosage: 100 MCG, QAM
     Route: 048
     Dates: start: 20150518
  8. POTASSIUM CHLORIDE. [Concomitant]
     Active Substance: POTASSIUM CHLORIDE
     Indication: ELECTROLYTE IMBALANCE
     Dosage: 10 MEQ, QD
     Route: 048
     Dates: start: 20150921
  9. ALBUTEROL. [Concomitant]
     Active Substance: ALBUTEROL
     Indication: DYSPNOEA
     Dosage: 108 MCG, PRN
     Route: 055
     Dates: start: 20150928
  10. LASIX [Concomitant]
     Active Substance: FUROSEMIDE
     Indication: DIURETIC THERAPY
     Dosage: 20 MG, QD
     Dates: start: 20150928
  11. MACITENTAN [Suspect]
     Active Substance: MACITENTAN
     Indication: PULMONARY ARTERIAL HYPERTENSION
     Dosage: 10 MG, QD
     Route: 048
     Dates: start: 20150909, end: 20151015
  12. ADCIRCA [Concomitant]
     Active Substance: TADALAFIL
     Indication: PULMONARY ARTERIAL HYPERTENSION
     Dosage: 40 MG, QD
     Route: 048
     Dates: start: 20150425

REACTIONS (26)
  - Haematemesis [Unknown]
  - Transfusion [Unknown]
  - Hyperbilirubinaemia [Unknown]
  - Hepatopulmonary syndrome [Unknown]
  - Pulmonary mass [Unknown]
  - Upper gastrointestinal haemorrhage [Fatal]
  - Splenomegaly [Fatal]
  - Jaundice [Fatal]
  - Ammonia increased [Unknown]
  - Alanine aminotransferase increased [Unknown]
  - Coagulopathy [Unknown]
  - Hepatic failure [Fatal]
  - Cardiac arrest [Fatal]
  - Encephalopathy [Fatal]
  - Vitamin K increased [Unknown]
  - Liver function test abnormal [Unknown]
  - Hypotension [Fatal]
  - Vomiting [Fatal]
  - Swelling [Unknown]
  - Ascites [Fatal]
  - Nausea [Fatal]
  - Gastric varices [Unknown]
  - Pneumonia [Unknown]
  - Hepatic cirrhosis [Fatal]
  - Ischaemic hepatitis [Unknown]
  - Aspartate aminotransferase increased [Unknown]

NARRATIVE: CASE EVENT DATE: 20151014
